FAERS Safety Report 8784744 (Version 1)
Quarter: 2012Q4

REPORT INFORMATION
  Report Type: Spontaneous
  Country: US (occurrence: None)
  Receive Date: 20120828
  Receipt Date: 20120828
  Transmission Date: 20130627
  Serious: Yes (Other)
  Sender: FDA-Public Use
  Company Number: US-1193728

PATIENT
  Sex: Male

DRUGS (2)
  1. BSS [Suspect]
     Indication: INTRAOCULAR LENS IMPLANT
     Route: 031
     Dates: start: 2012, end: 2012
  2. BSS [Suspect]
     Route: 031
     Dates: start: 2012, end: 2012

REACTIONS (2)
  - Endophthalmitis [None]
  - Procedural complication [None]
